FAERS Safety Report 23315538 (Version 1)
Quarter: 2023Q4

REPORT INFORMATION
  Report Type: Spontaneous
  Country: US (occurrence: US)
  Receive Date: 20231219
  Receipt Date: 20231219
  Transmission Date: 20240110
  Serious: No
  Sender: FDA-Public Use
  Company Number: US-ORG100016242-2023000224

PATIENT
  Sex: Female

DRUGS (1)
  1. EXPAREL [Suspect]
     Active Substance: BUPIVACAINE
     Indication: Haemorrhoid operation
     Route: 065
     Dates: start: 20230616, end: 20230616

REACTIONS (9)
  - Sexual dysfunction [Recovered/Resolved]
  - Euphoric mood [Recovered/Resolved]
  - Disturbance in attention [Recovered/Resolved]
  - Insomnia [Recovered/Resolved]
  - Hyperhidrosis [Recovered/Resolved]
  - Dyspnoea [Recovered/Resolved]
  - Confusional state [Recovered/Resolved]
  - Dysuria [Recovered/Resolved]
  - Anal hypoaesthesia [Recovered/Resolved]

NARRATIVE: CASE EVENT DATE: 20230618
